FAERS Safety Report 6263471-4 (Version None)
Quarter: 2009Q3

REPORT INFORMATION
  Report Type: 
  Country: None (occurrence: None)
  Receive Date: 20090710
  Receipt Date: 20090501
  Transmission Date: 20100115
  Serious: No
  Sender: FDA-Public Use
  Company Number: A0781646A

PATIENT
  Age: 4 Year
  Sex: Female

DRUGS (2)
  1. FLOVENT [Suspect]
     Dosage: 2SPR PER DAY
     Route: 055
     Dates: start: 20081201
  2. NO CONCURRENT MEDICATION [Concomitant]

REACTIONS (2)
  - ABNORMAL BEHAVIOUR [None]
  - MOOD SWINGS [None]
